FAERS Safety Report 10257488 (Version 1)
Quarter: 2014Q2

REPORT INFORMATION
  Report Type: Spontaneous
  Country: US (occurrence: US)
  Receive Date: 20140625
  Receipt Date: 20140625
  Transmission Date: 20141212
  Serious: No
  Sender: FDA-Public Use
  Company Number: US-GLAXOSMITHKLINE-A1035159A

PATIENT
  Age: 82 Year
  Sex: Female

DRUGS (5)
  1. VERAMYST [Suspect]
     Indication: NASAL DISORDER
     Dosage: 1SPR TWICE PER DAY
     Route: 045
     Dates: start: 20130102
  2. ASTEPRO [Concomitant]
  3. COUMADIN [Concomitant]
  4. MAGNESIUM [Concomitant]
  5. HEART MEDICATION [Concomitant]

REACTIONS (1)
  - Rhinorrhoea [Not Recovered/Not Resolved]
